FAERS Safety Report 6897071-X (Version None)
Quarter: 2010Q3

REPORT INFORMATION
  Report Type: 
  Country: None (occurrence: None)
  Receive Date: 20100729
  Receipt Date: 20100721
  Transmission Date: 20110219
  Serious: Yes (Death, Hospitalization)
  Sender: FDA-Public Use
  Company Number: 2010SA013191

PATIENT
  Age: 72 Year
  Sex: Male

DRUGS (7)
  1. WARFARIN SODIUM [Suspect]
     Indication: PULMONARY EMBOLISM
     Dosage: DOSE, FORM, ROUTE AND FREQUENCY UNKNOWN
     Dates: start: 20091228, end: 20100709
  2. ENOXAPARIN SODIUM [Suspect]
     Indication: PULMONARY EMBOLISM
     Dosage: 1 MILLIGRAM(S)/KILOGRAM; TWICE A DAY, SC
     Route: 058
     Dates: start: 20091228, end: 20100102
  3. SIMVASTATIN [Concomitant]
  4. METOPROLOL TARTRATE [Concomitant]
  5. AMLODIPINE [Concomitant]
  6. NEBIVOLOL HCL [Concomitant]
  7. PREV MEDS [Concomitant]

REACTIONS (35)
  - ABDOMINAL PAIN [None]
  - AORTIC ARTERIOSCLEROSIS [None]
  - ARTERIOSCLEROSIS CORONARY ARTERY [None]
  - ARTERIOSCLEROSIS OBLITERANS [None]
  - ASTHENIA [None]
  - BENIGN PROSTATIC HYPERPLASIA [None]
  - BRONCHITIS CHRONIC [None]
  - CARDIAC ARREST [None]
  - CARDIAC FAILURE [None]
  - CARDIORENAL SYNDROME [None]
  - CHEST PAIN [None]
  - CONDITION AGGRAVATED [None]
  - CYSTITIS NONINFECTIVE [None]
  - DIZZINESS [None]
  - EPISTAXIS [None]
  - GASTRITIS ATROPHIC [None]
  - GASTRITIS EROSIVE [None]
  - GASTRITIS HAEMORRHAGIC [None]
  - GASTRODUODENAL HAEMORRHAGE [None]
  - GASTRODUODENAL ULCER [None]
  - GASTROINTESTINAL NECROSIS [None]
  - GASTROOESOPHAGEAL REFLUX DISEASE [None]
  - GENERAL PHYSICAL HEALTH DETERIORATION [None]
  - HAEMORRHAGIC ANAEMIA [None]
  - HEADACHE [None]
  - LEFT VENTRICULAR HYPERTROPHY [None]
  - MYOCARDIAL ISCHAEMIA [None]
  - PLEURISY [None]
  - PNEUMONIA [None]
  - PROSTATIC ADENOMA [None]
  - RENAL ARTERIOSCLEROSIS [None]
  - RENAL COLIC [None]
  - RETINAL DETACHMENT [None]
  - THROMBOSIS MESENTERIC VESSEL [None]
  - VENTRICULAR EXTRASYSTOLES [None]
